FAERS Safety Report 15807758 (Version 1)
Quarter: 2019Q1

REPORT INFORMATION
  Report Type: Spontaneous
  Country: IE (occurrence: IE)
  Receive Date: 20190110
  Receipt Date: 20190110
  Transmission Date: 20190417
  Serious: Yes (Other)
  Sender: FDA-Public Use
  Company Number: IE-PFIZER INC-2019011418

PATIENT
  Age: 77 Year
  Sex: Male

DRUGS (11)
  1. FOLIC ACID. [Concomitant]
     Active Substance: FOLIC ACID
     Dosage: 5 MG, UNK
     Route: 048
  2. LANSOPRAZOLE. [Concomitant]
     Active Substance: LANSOPRAZOLE
     Dosage: 30 MG, UNK
     Route: 048
  3. ROSUVASTATIN. [Concomitant]
     Active Substance: ROSUVASTATIN
     Dosage: 10 MG, UNK
     Route: 048
  4. ELIQUIS [Concomitant]
     Active Substance: APIXABAN
     Dosage: 5 MG, 2X/DAY
     Route: 048
  5. LACTULOSE. [Concomitant]
     Active Substance: LACTULOSE
     Dosage: 15 ML, 2X/DAY
     Route: 048
  6. HYDROXOCOBALAMIN [Concomitant]
     Active Substance: HYDROXOCOBALAMIN
     Dosage: 1 MG, EVERY 3 MONTHS
     Route: 030
  7. PREGABALIN. [Suspect]
     Active Substance: PREGABALIN
     Indication: DYSAESTHESIA
     Dosage: 150 MG, DAILY
     Route: 048
  8. TIZANIDINE. [Concomitant]
     Active Substance: TIZANIDINE
     Dosage: 2 MG, UNK
     Route: 048
  9. DIFENE [Concomitant]
     Active Substance: DICLOFENAC SODIUM
     Dosage: GEL
  10. LINAGLIPTIN [Concomitant]
     Active Substance: LINAGLIPTIN
     Dosage: 5 MG, 1X/DAY
     Route: 048
  11. PARACETAMOL [Concomitant]
     Active Substance: ACETAMINOPHEN
     Dosage: 1 G, 3X/DAY
     Route: 048

REACTIONS (2)
  - Oedema peripheral [Recovering/Resolving]
  - Mobility decreased [Recovering/Resolving]

NARRATIVE: CASE EVENT DATE: 20181129
